FAERS Safety Report 18773226 (Version 1)
Quarter: 2021Q1

REPORT INFORMATION
  Report Type: Spontaneous
  Country: US (occurrence: US)
  Receive Date: 20210122
  Receipt Date: 20210122
  Transmission Date: 20210419
  Serious: Yes (Hospitalization)
  Sender: FDA-Public Use
  Company Number: None

PATIENT
  Sex: Male

DRUGS (2)
  1. ACYCLOVIR, ATOVAQUONE, ONDANSETRON, VIMPAT, NITROFURANTIN [Concomitant]
  2. TEMOZOLOMIDE. [Suspect]
     Active Substance: TEMOZOLOMIDE
     Indication: BRAIN CANCER METASTATIC
     Dosage: ?          OTHER FREQUENCY:QD DAY 1?7, 15?21;?
     Route: 048
     Dates: start: 20201203

REACTIONS (2)
  - Therapy interrupted [None]
  - Hospitalisation [None]
